FAERS Safety Report 8759113 (Version 2)
Quarter: 2012Q4

REPORT INFORMATION
  Report Type: 
  Country: BR (occurrence: BR)
  Receive Date: 20120829
  Receipt Date: 20120829
  Transmission Date: 20130627
  Serious: Yes (Other)
  Sender: FDA-Public Use
  Company Number: PHHY2009BR55411

PATIENT
  Age: 79 Year
  Sex: Female

DRUGS (6)
  1. RASILEZ [Suspect]
     Indication: HYPERTENSION
     Dosage: 1 DF, QD (in the morning)
  2. DIOVAN HCT [Suspect]
     Indication: HYPERTENSION
     Dosage: 1 DF (160 mg vals and 12.5 mg hydro), UNK
     Route: 048
  3. DIOVAN HCT [Suspect]
     Dosage: 1 DF (320 mg vals and 12.5 mg hydro), in the morning
     Route: 048
  4. ZANIDIP [Suspect]
     Indication: CARDIAC DISORDER
     Dosage: 1 DF, BID
  5. CONCOR [Suspect]
     Indication: CARDIAC DISORDER
     Dosage: 1 DF, QD (in the morning)
  6. RYTMONORM [Suspect]
     Indication: ARRHYTHMIA
     Dosage: 1.5 DF (one tablet in morning and half tablet at night), UNK

REACTIONS (5)
  - Cerebrovascular accident [Recovered/Resolved]
  - Memory impairment [Recovered/Resolved]
  - Sleep apnoea syndrome [Recovered/Resolved]
  - Exostosis [Recovered/Resolved]
  - Blood pressure fluctuation [Recovered/Resolved]
